FAERS Safety Report 5369173-0 (Version None)
Quarter: 2007Q2

REPORT INFORMATION
  Report Type: 
  Country: None (occurrence: None)
  Receive Date: 20070621
  Receipt Date: 20070621
  Transmission Date: 20071010
  Serious: Yes (Hospitalization, Other)
  Sender: FDA-Public Use
  Company Number: None

PATIENT
  Age: 17 Year
  Sex: Female

DRUGS (2)
  1. ENBREL [Suspect]
  2. METHOTREXATE [Concomitant]

REACTIONS (8)
  - ARTHRITIS [None]
  - CACHEXIA [None]
  - CONDITION AGGRAVATED [None]
  - FINGER DEFORMITY [None]
  - NAIL DISORDER [None]
  - PNEUMONITIS [None]
  - PUSTULAR PSORIASIS [None]
  - TOXIC SHOCK SYNDROME STAPHYLOCOCCAL [None]
